FAERS Safety Report 17153913 (Version 1)
Quarter: 2019Q4

REPORT INFORMATION
  Report Type: Spontaneous
  Country: US (occurrence: US)
  Receive Date: 20191213
  Receipt Date: 20191213
  Transmission Date: 20200122
  Serious: No
  Sender: FDA-Public Use
  Company Number: US-MCGUFF PHARMACEUTICALS, INC.-2077828

PATIENT
  Age: 62 Year
  Sex: Female

DRUGS (1)
  1. ASCOR [Suspect]
     Active Substance: ASCORBIC ACID
     Route: 013
     Dates: start: 20191011, end: 20191011

REACTIONS (2)
  - Headache [Recovered/Resolved]
  - Hypertension [Recovered/Resolved]

NARRATIVE: CASE EVENT DATE: 20191011
